FAERS Safety Report 18466491 (Version 3)
Quarter: 2020Q4

REPORT INFORMATION
  Report Type: Spontaneous
  Country: US (occurrence: US)
  Receive Date: 20201105
  Receipt Date: 20201124
  Transmission Date: 20210114
  Serious: Yes (Death, Life-Threatening, Hospitalization, Other)
  Sender: FDA-Public Use
  Company Number: US-CIPLA LTD.-2020US07816

PATIENT

DRUGS (11)
  1. CARBOPLATIN. [Suspect]
     Active Substance: CARBOPLATIN
     Indication: CERVIX CANCER METASTATIC
  2. CISPLATIN. [Suspect]
     Active Substance: CISPLATIN
     Indication: CERVIX CANCER METASTATIC
     Dosage: 40 MILLIGRAM/SQ. METER, WEEKLY
     Route: 042
     Dates: start: 20190819
  3. FOLIC ACID. [Concomitant]
     Active Substance: FOLIC ACID
     Indication: PRODUCT USED FOR UNKNOWN INDICATION
     Dosage: 1 MILLIGRAM, QD
     Route: 048
  4. CISPLATIN. [Suspect]
     Active Substance: CISPLATIN
     Indication: SQUAMOUS CELL CARCINOMA OF THE CERVIX
     Dosage: 40 MILLIGRAM/SQ. METER, WEEKLY
     Route: 042
     Dates: start: 20190812
  5. ACETAMINOPHEN. [Concomitant]
     Active Substance: ACETAMINOPHEN
     Indication: PAIN
     Dosage: 325 MILLIGRAM, PRN (EVERY 6 HOURS AS NEEDED)
     Route: 048
  6. LOPERAMIDE [Concomitant]
     Active Substance: LOPERAMIDE
     Indication: DIARRHOEA
     Dosage: 2 MILLIGRAM, PRN
     Route: 048
  7. CARBOPLATIN. [Suspect]
     Active Substance: CARBOPLATIN
     Indication: SQUAMOUS CELL CARCINOMA OF THE CERVIX
     Dosage: AUC 2, ONE DOSE, 220 MILLIGRAM
     Route: 042
     Dates: start: 20191010
  8. TRAMADOL. [Concomitant]
     Active Substance: TRAMADOL
     Indication: PAIN
     Dosage: 50 MILLIGRAM, PRN (EVERY 8 HOURS AS NEEDED)
     Route: 048
  9. CISPLATIN. [Suspect]
     Active Substance: CISPLATIN
     Dosage: 40 MILLIGRAM/SQ. METER, WEEKLY
     Route: 042
     Dates: start: 20190826, end: 2019
  10. DEXAMETHASONE. [Concomitant]
     Active Substance: DEXAMETHASONE
     Indication: PRODUCT USED FOR UNKNOWN INDICATION
     Dosage: 4 MILLIGRAM, BID (FOR 3 DAYS POST-CHEMOTHERAPY)
     Route: 048
  11. PROCHLORPERAZINE. [Concomitant]
     Active Substance: PROCHLORPERAZINE
     Indication: DIARRHOEA
     Dosage: 10 MILLIGRAM, PRN (EVERY 6 HOURS AS NEEDED)
     Route: 048

REACTIONS (14)
  - Hypovolaemic shock [Unknown]
  - Encephalopathy [Fatal]
  - Hypoglycaemia [Fatal]
  - General physical health deterioration [Unknown]
  - Pulmonary embolism [Unknown]
  - Hepatitis B reactivation [Fatal]
  - Acute hepatic failure [Fatal]
  - Ventricular tachycardia [Fatal]
  - Mental status changes [Unknown]
  - Deep vein thrombosis [Unknown]
  - Coagulopathy [Fatal]
  - Metabolic acidosis [Fatal]
  - Cytopenia [Unknown]
  - Cardiac arrest [Fatal]

NARRATIVE: CASE EVENT DATE: 201910
